FAERS Safety Report 4884436-0 (Version None)
Quarter: 2006Q1

REPORT INFORMATION
  Report Type: 
  Country: None (occurrence: None)
  Receive Date: 20060117
  Receipt Date: 20060117
  Transmission Date: 20060701
  Serious: Yes (Hospitalization)
  Sender: FDA-Public Use
  Company Number: None

PATIENT
  Age: 93 Year
  Sex: Female

DRUGS (14)
  1. TEQUIN [Suspect]
     Indication: PNEUMONIA
     Dosage: 400 MG QD PO X 5 DAYS
     Route: 048
     Dates: start: 20051209, end: 20051213
  2. PREDNISONE [Concomitant]
  3. ATACAND [Concomitant]
  4. ZOLOFT [Concomitant]
  5. ATENOLOL [Concomitant]
  6. NAMENDA [Concomitant]
  7. ARICEPT [Concomitant]
  8. GLIPIZIDE [Concomitant]
  9. HYDROCHLOROTHIAZIDE [Concomitant]
  10. AVANDIA [Concomitant]
  11. ASPIRIN [Concomitant]
  12. M.V.I. [Concomitant]
  13. ALPHAGAN [Concomitant]
  14. XALATAN [Concomitant]

REACTIONS (4)
  - DYSPNOEA [None]
  - HYPERHIDROSIS [None]
  - HYPOGLYCAEMIA [None]
  - URINE OUTPUT DECREASED [None]
